FAERS Safety Report 5379954-5 (Version None)
Quarter: 2007Q3

REPORT INFORMATION
  Report Type: 
  Country: None (occurrence: None)
  Receive Date: 20070706
  Receipt Date: 20070625
  Transmission Date: 20080115
  Serious: Yes (Other)
  Sender: FDA-Public Use
  Company Number: IN-JNJFOC-20070605380

PATIENT
  Age: 8 Year
  Sex: Male

DRUGS (2)
  1. OFLOXACIN [Suspect]
     Indication: TYPHOID FEVER
     Route: 048
  2. PARACETAMOL [Concomitant]
     Indication: PYREXIA
     Route: 065

REACTIONS (1)
  - ARTHROPATHY [None]
